FAERS Safety Report 7233462-5 (Version None)
Quarter: 2011Q1

REPORT INFORMATION
  Report Type: 
  Country: None (occurrence: None)
  Receive Date: 20110107
  Receipt Date: 20101223
  Transmission Date: 20110831
  Serious: Yes (Death, Hospitalization, Other)
  Sender: FDA-Public Use
  Company Number: 2010004584

PATIENT
  Age: 64 Year
  Sex: Female

DRUGS (7)
  1. MULTIVITAMIN [Concomitant]
  2. TRAZODONE HCL [Concomitant]
  3. ONDANSETRON [Concomitant]
  4. ERLOTINIB (ERLOTINIB) (TABLET) (ERLOTINIB) [Suspect]
     Indication: NON-SMALL CELL LUNG CANCER
     Dosage: 150 MG, QD, ORAL
     Route: 048
     Dates: start: 20101004
  5. MECLIZINE [Concomitant]
  6. DASATIMIB [Suspect]
     Indication: NON-SMALL CELL LUNG CANCER
     Dosage: 70 MG, QD, ORAL
     Route: 048
     Dates: start: 20101004
  7. VITAMIN D [Concomitant]

REACTIONS (9)
  - PLEURAL EFFUSION [None]
  - PNEUMONIA [None]
  - RESPIRATORY FAILURE [None]
  - PANIC ATTACK [None]
  - TRACHEOBRONCHITIS [None]
  - LYMPHANGIOSIS CARCINOMATOSA [None]
  - ANXIETY [None]
  - WHEEZING [None]
  - PULMONARY OEDEMA [None]
